FAERS Safety Report 17610204 (Version 1)
Quarter: 2020Q2

REPORT INFORMATION
  Report Type: Spontaneous
  Country: SE (occurrence: SE)
  Receive Date: 20200401
  Receipt Date: 20200401
  Transmission Date: 20200713
  Serious: Yes (Other)
  Sender: FDA-Public Use
  Company Number: SE-GLAXOSMITHKLINE-SE2020052838

PATIENT
  Age: 62 Year
  Sex: Female

DRUGS (1)
  1. SCOPODERM TTS [Suspect]
     Active Substance: SCOPOLAMINE
     Indication: SALIVARY HYPERSECRETION
     Dosage: DOSAGE: 1 PATCH, 1 MG/72 HOUR
     Route: 065
     Dates: start: 20200128, end: 20200129

REACTIONS (1)
  - Convulsive threshold lowered [Recovered/Resolved]

NARRATIVE: CASE EVENT DATE: 202001
